FAERS Safety Report 17994476 (Version 1)
Quarter: 2020Q3

REPORT INFORMATION
  Report Type: Spontaneous
  Country: US (occurrence: US)
  Receive Date: 20200707
  Receipt Date: 20200707
  Transmission Date: 20201103
  Serious: No
  Sender: FDA-Public Use
  Company Number: None

PATIENT

DRUGS (2)
  1. TYLENOL [Suspect]
     Active Substance: ACETAMINOPHEN
  2. MOTRIN [Suspect]
     Active Substance: IBUPROFEN

REACTIONS (4)
  - Product communication issue [None]
  - Product dosage form issue [None]
  - Product formulation issue [None]
  - Incorrect dose administered [None]
